FAERS Safety Report 5346873-X (Version None)
Quarter: 2007Q2

REPORT INFORMATION
  Report Type: 
  Country: None (occurrence: None)
  Receive Date: 20070604
  Receipt Date: 20070515
  Transmission Date: 20071010
  Serious: Yes (Death)
  Sender: FDA-Public Use
  Company Number: 6033521

PATIENT

DRUGS (2)
  1. ENALAPRIL [Suspect]
     Indication: DRUG EXPOSURE DURING PREGNANCY
     Dosage: 5 MG (5 MG, 1 IN 1 D)
     Route: 064
  2. ANTIHYPERTENSIVES [Concomitant]

REACTIONS (6)
  - DRUG EXPOSURE DURING PREGNANCY [None]
  - FOETAL GROWTH RETARDATION [None]
  - HYDROPS FOETALIS [None]
  - NEONATAL DISORDER [None]
  - RENAL FAILURE [None]
  - RENAL FAILURE NEONATAL [None]
